FAERS Safety Report 8366828-0 (Version None)
Quarter: 2012Q2

REPORT INFORMATION
  Report Type: 
  Country: None (occurrence: None)
  Receive Date: 20120517
  Receipt Date: 20120510
  Transmission Date: 20120825
  Serious: Yes (Other)
  Sender: FDA-Public Use
  Company Number: VE-ROCHE-1069516

PATIENT
  Sex: Male

DRUGS (2)
  1. DIOVAN [Concomitant]
     Indication: HYPERTENSION
     Dates: start: 20110101
  2. XOLAIR [Suspect]
     Indication: URTICARIA CHRONIC
     Route: 058
     Dates: start: 20120306

REACTIONS (1)
  - TENOSYNOVITIS [None]
